FAERS Safety Report 7550781-3 (Version None)
Quarter: 2011Q2

REPORT INFORMATION
  Report Type: 
  Country: None (occurrence: None)
  Receive Date: 20110616
  Receipt Date: 20110603
  Transmission Date: 20111010
  Serious: Yes (Death, Other)
  Sender: FDA-Public Use
  Company Number: JP-JNJFOC-20110412140

PATIENT
  Sex: Male

DRUGS (14)
  1. ASPIRIN [Concomitant]
     Indication: MYOCARDIAL ISCHAEMIA
     Route: 048
     Dates: end: 20110401
  2. WARFARIN SODIUM [Concomitant]
     Indication: ATRIAL FIBRILLATION
     Dosage: START DATE:BEFORE JUL-2010
     Route: 048
     Dates: end: 20110401
  3. CRESTOR [Concomitant]
     Indication: HYPERLIPIDAEMIA
     Dosage: START DATE:BEFORE JUL-2010
     Route: 048
     Dates: end: 20110401
  4. ROCALTROL [Concomitant]
     Dosage: START DATE:BEFORE JUL-2010
     Route: 048
     Dates: end: 20110401
  5. PROTECADIN [Concomitant]
     Indication: GASTRITIS PROPHYLAXIS
     Dosage: START DATE:BEFORE JUL-2010
     Route: 048
     Dates: end: 20110401
  6. LEVOFLOXACIN [Suspect]
     Indication: PNEUMONIA
     Route: 048
     Dates: start: 20110401, end: 20110401
  7. YODEL [Concomitant]
     Indication: CONSTIPATION
     Route: 048
     Dates: start: 20100909, end: 20110401
  8. SPIRONOLACTONE [Concomitant]
     Indication: RENAL FAILURE
     Dosage: START DATE:BEFORE JUL-2010
     Route: 048
     Dates: end: 20110401
  9. PLETAL [Concomitant]
     Indication: ARTERIOSCLEROSIS OBLITERANS
     Dosage: START DATE:BEFORE JUL-2010
     Route: 048
     Dates: end: 20110401
  10. DIART [Concomitant]
     Indication: RENAL FAILURE
     Dosage: START DATE:BEFORE JUL-2010
     Route: 048
     Dates: end: 20110401
  11. WARFARIN SODIUM [Concomitant]
     Indication: ATRIAL FIBRILLATION
     Dosage: START DATE:BEFORE JUL-2010
     Route: 048
     Dates: end: 20110401
  12. DAI-KENCHU-TO [Concomitant]
     Indication: CONSTIPATION
     Dosage: START DATE:BEFORE JUL-2010
     Route: 048
     Dates: end: 20110401
  13. ADALAT CC [Concomitant]
     Indication: HYPERTENSION
     Route: 048
     Dates: end: 20110401
  14. ALESION [Concomitant]
     Indication: HYPERSENSITIVITY
     Dosage: START DATE:BEFORE JUL-2010
     Route: 048
     Dates: end: 20110401

REACTIONS (4)
  - INTERNATIONAL NORMALISED RATIO INCREASED [None]
  - COMA SCALE ABNORMAL [None]
  - LIVER DISORDER [None]
  - HYPOTENSION [None]
